FAERS Safety Report 22270497 (Version 1)
Quarter: 2023Q2

REPORT INFORMATION
  Report Type: Spontaneous
  Country: US (occurrence: None)
  Receive Date: 20230429
  Receipt Date: 20230429
  Transmission Date: 20230722
  Serious: No
  Sender: FDA-Public Use
  Company Number: None

PATIENT
  Age: 71 Year
  Sex: Female
  Weight: 50.4 kg

DRUGS (3)
  1. PATADAY ONCE DAILY RELIEF [Suspect]
     Active Substance: OLOPATADINE HYDROCHLORIDE
     Indication: Multiple allergies
     Dosage: OTHER QUANTITY : 1 ONE DROP PER EYE;?FREQUENCY : DAILY;?
     Route: 047
     Dates: start: 20230429, end: 20230429
  2. VITAMIN B COMPLEX [Concomitant]
     Active Substance: CYANOCOBALAMIN\DEXPANTHENOL\NIACINAMIDE\PYRIDOXINE HYDROCHLORIDE\RIBOFLAVIN 5^-PHOSPHATE SODIUM\THIA
  3. FISH OIL [Concomitant]
     Active Substance: FISH OIL

REACTIONS (8)
  - Eye pain [None]
  - Product use complaint [None]
  - Product label confusion [None]
  - Anger [None]
  - Vision blurred [None]
  - Fear [None]
  - Product use complaint [None]
  - Product container issue [None]

NARRATIVE: CASE EVENT DATE: 20230429
